FAERS Safety Report 8128749-8 (Version None)
Quarter: 2012Q1

REPORT INFORMATION
  Report Type: 
  Country: None (occurrence: None)
  Receive Date: 20120210
  Receipt Date: 20120202
  Transmission Date: 20120608
  Serious: Yes (Other)
  Sender: FDA-Public Use
  Company Number: US-JNJFOC-20120203505

PATIENT
  Sex: Female
  Weight: 35.38 kg

DRUGS (5)
  1. MULTI-VITAMINS [Concomitant]
     Indication: MEDICAL DIET
     Route: 048
     Dates: start: 20020101
  2. VITAMIN D [Concomitant]
     Indication: MEDICAL DIET
     Route: 048
     Dates: start: 20020101
  3. CLARITIN [Concomitant]
     Indication: MULTIPLE ALLERGIES
     Route: 048
     Dates: start: 20020101
  4. REMICADE [Suspect]
     Indication: COLITIS ULCERATIVE
     Route: 042
     Dates: start: 20120127
  5. REMICADE [Suspect]
     Route: 042
     Dates: start: 20100301

REACTIONS (4)
  - PALLOR [None]
  - INFUSION RELATED REACTION [None]
  - FATIGUE [None]
  - STUPOR [None]
